FAERS Safety Report 8921534 (Version 1)
Quarter: 2012Q4

REPORT INFORMATION
  Report Type: 
  Country: US (occurrence: US)
  Receive Date: 20121121
  Receipt Date: 20121121
  Transmission Date: 20130627
  Serious: Yes (Other)
  Sender: FDA-Public Use
  Company Number: US-ELI_LILLY_AND_COMPANY-US201211003989

PATIENT

DRUGS (4)
  1. CYMBALTA [Suspect]
     Dosage: UNK
     Route: 064
  2. CYMBALTA [Suspect]
     Dosage: UNK
     Route: 064
  3. CYMBALTA [Suspect]
     Dosage: UNK
     Route: 063
  4. CYMBALTA [Suspect]
     Dosage: UNK
     Route: 063

REACTIONS (5)
  - Speech disorder developmental [Unknown]
  - Developmental delay [Unknown]
  - Sensory disturbance [Unknown]
  - Foetal exposure during pregnancy [Recovered/Resolved]
  - Exposure during breast feeding [Recovered/Resolved]
